FAERS Safety Report 26165538 (Version 1)
Quarter: 2025Q4

REPORT INFORMATION
  Report Type: Spontaneous
  Country: JP (occurrence: JP)
  Receive Date: 20251216
  Receipt Date: 20251216
  Transmission Date: 20260118
  Serious: Yes (Disabling)
  Sender: Ocuvex Therapeutics
  Company Number: JP-SANTENLTD-2025-JPN-010187

PATIENT
  Age: 77 Year
  Sex: Female

DRUGS (6)
  1. OMIDENEPAG ISOPROPYL [Suspect]
     Active Substance: OMIDENEPAG ISOPROPYL
     Indication: Glaucoma
     Dosage: 1 DROP, ONCE A DAY, IN BOTH EYES
     Route: 047
     Dates: start: 20241206, end: 20250108
  2. OMIDENEPAG ISOPROPYL [Suspect]
     Active Substance: OMIDENEPAG ISOPROPYL
     Dosage: 1 DROP, ONCE A DAY, IN BOTH EYES
     Route: 047
     Dates: start: 20251007, end: 20251031
  3. CARBAZOCHROME [Concomitant]
     Active Substance: CARBAZOCHROME
     Indication: Retinal detachment
     Dosage: 3T
     Dates: start: 20240604
  4. VABYSMO [Concomitant]
     Active Substance: FARICIMAB-SVOA
     Indication: Retinal vein occlusion
     Dosage: 1ST TIME
     Route: 065
     Dates: start: 20240607
  5. VABYSMO [Concomitant]
     Active Substance: FARICIMAB-SVOA
     Indication: Macular oedema
     Dosage: SECOND TIME
     Route: 065
     Dates: start: 20240802
  6. VABYSMO [Concomitant]
     Active Substance: FARICIMAB-SVOA
     Dosage: THIRD TIME
     Route: 065
     Dates: start: 20241206

REACTIONS (3)
  - Iris neovascularisation [Recovered/Resolved]
  - Uveitis [Recovered/Resolved]
  - Keratitis [Recovered/Resolved]

NARRATIVE: CASE EVENT DATE: 20250108
